APPROVED DRUG PRODUCT: NAPROSYN
Active Ingredient: NAPROXEN
Strength: 500MG
Dosage Form/Route: TABLET;ORAL
Application: N017581 | Product #004 | TE Code: AB
Applicant: ATNAHS PHARMA US LTD
Approved: Apr 15, 1982 | RLD: Yes | RS: Yes | Type: RX